FAERS Safety Report 19800328 (Version 1)
Quarter: 2021Q3

REPORT INFORMATION
  Report Type: Spontaneous
  Country: US (occurrence: US)
  Receive Date: 20210908
  Receipt Date: 20210908
  Transmission Date: 20211014
  Serious: No
  Sender: FDA-Public Use
  Company Number: US-AMGEN-USASP2021136327

PATIENT
  Age: 74 Year
  Sex: Male

DRUGS (1)
  1. XGEVA [Suspect]
     Active Substance: DENOSUMAB
     Indication: NEUROENDOCRINE CARCINOMA
     Dosage: Q4WK
     Route: 065
     Dates: start: 2020

REACTIONS (1)
  - Artificial crown procedure [Unknown]

NARRATIVE: CASE EVENT DATE: 20210901
